FAERS Safety Report 9336933 (Version 2)
Quarter: 2013Q2

REPORT INFORMATION
  Report Type: Spontaneous
  Country: US (occurrence: US)
  Receive Date: 20130607
  Receipt Date: 20130612
  Transmission Date: 20140414
  Serious: Yes (Other)
  Sender: FDA-Public Use
  Company Number: US-PFIZER INC-2013171960

PATIENT
  Age: 40 Year
  Sex: Female
  Weight: 59 kg

DRUGS (5)
  1. ZOLOFT [Suspect]
     Indication: DEPRESSION
     Dosage: 175 MG, 1X/DAY
     Route: 048
     Dates: end: 201204
  2. ZOLOFT [Suspect]
     Indication: ANXIETY
     Dosage: 12.5 MG, 1X/DAY
     Route: 048
     Dates: start: 201204, end: 201301
  3. ZOLOFT [Suspect]
     Dosage: 175 MG, 1X/DAY
     Route: 048
     Dates: start: 201302
  4. XANAX [Suspect]
     Indication: PANIC ATTACK
     Dosage: UNK, AS NEEDED (ONCE EVERY FEW MONTHS)
     Dates: end: 2013
  5. KLONOPIN [Concomitant]
     Dosage: UNK

REACTIONS (5)
  - Obsessive-compulsive disorder [Not Recovered/Not Resolved]
  - Drug ineffective [Not Recovered/Not Resolved]
  - Drug ineffective [Unknown]
  - Insomnia [Unknown]
  - Middle insomnia [Unknown]
